FAERS Safety Report 13349702 (Version 1)
Quarter: 2017Q1

REPORT INFORMATION
  Report Type: Spontaneous
  Country: CH (occurrence: AU)
  Receive Date: 20170320
  Receipt Date: 20170320
  Transmission Date: 20170429
  Serious: Yes (Other)
  Sender: FDA-Public Use
  Company Number: CH-LPDUSPRD-20170263

PATIENT
  Age: 43 Year
  Sex: Female

DRUGS (1)
  1. FERINJECT [Suspect]
     Active Substance: FERRIC CARBOXYMALTOSE
     Dosage: 1000MG
     Route: 041
     Dates: start: 20161206, end: 20161206

REACTIONS (9)
  - Flushing [Unknown]
  - Swelling face [Unknown]
  - Angioedema [Unknown]
  - Paraesthesia [Unknown]
  - Eye swelling [Unknown]
  - Rash [Unknown]
  - Urticaria [Unknown]
  - Headache [Unknown]
  - Pruritus [Unknown]

NARRATIVE: CASE EVENT DATE: 20161206
